FAERS Safety Report 6642647-8 (Version None)
Quarter: 2010Q1

REPORT INFORMATION
  Report Type: 
  Country: None (occurrence: None)
  Receive Date: 20100319
  Receipt Date: 20100315
  Transmission Date: 20100710
  Serious: Yes (Hospitalization, Other)
  Sender: FDA-Public Use
  Company Number: US-BRISTOL-MYERS SQUIBB COMPANY-14383988

PATIENT
  Age: 28 Year
  Sex: Female

DRUGS (14)
  1. REYATAZ [Suspect]
     Indication: HIV INFECTION
     Route: 048
     Dates: start: 20080225
  2. COMBIVIR [Suspect]
     Indication: HIV INFECTION
     Dosage: 1 DOSAGE FORM=600/300MG.
     Route: 048
     Dates: start: 20080225
  3. NORVIR [Suspect]
     Indication: HIV INFECTION
     Route: 048
     Dates: start: 20080225
  4. RETROVIR [Suspect]
     Indication: HIV INFECTION
     Dosage: 1DF=1OR2/MG/KG/HR
     Route: 042
     Dates: start: 20080805, end: 20080805
  5. DIFLUCAN [Concomitant]
  6. FERROUS SULFATE TAB [Concomitant]
  7. KEFLEX [Concomitant]
  8. PHENERGAN HCL [Concomitant]
  9. DEMEROL [Concomitant]
     Indication: EPIDURAL ANAESTHESIA
  10. VITAMIN AND MINERAL PRENATAL SUPPLEMENT W/ FOLIC ACID CAP [Concomitant]
  11. PEPCID [Concomitant]
  12. MACRODANTIN [Concomitant]
  13. RINGERS SOLUTION, LACTATED [Concomitant]
  14. OXYTOCIN [Concomitant]

REACTIONS (10)
  - ANAEMIA [None]
  - BLOOD PRESSURE INCREASED [None]
  - CHOLELITHIASIS [None]
  - FUNGAL INFECTION [None]
  - GUILLAIN-BARRE SYNDROME [None]
  - LIVE BIRTH [None]
  - MECONIUM STAIN [None]
  - PLACENTA PRAEVIA [None]
  - PREGNANCY [None]
  - STAPHYLOCOCCAL INFECTION [None]
